FAERS Safety Report 9191155 (Version 1)
Quarter: 2013Q1

REPORT INFORMATION
  Report Type: Spontaneous
  Country: US (occurrence: None)
  Receive Date: 20120703
  Receipt Date: 20120703
  Transmission Date: 20140127
  Serious: No
  Sender: FDA-Public Use
  Company Number: PHEH2012US010445

PATIENT
  Sex: Female

DRUGS (6)
  1. GILENYA (FTY)CAPSULE [Suspect]
     Route: 048
  2. TIZANIDINE (TIZANIDINE) TABLET [Concomitant]
  3. GABAPENTIN (GABAPENTIN) [Concomitant]
  4. RITALIN (METHYLPHENIDATE HYDROCHLORIDE) TABLET [Concomitant]
  5. MULTIVITAMINS (ASCORBIC ACID, ERGOCALCIFEROL, FOLIC ACID, NICOTINAMIDE, PANTHENOL, RETINOL, RIBOFLAVIN, THAIAMINE HYDROCHLORIDE) TABLET [Concomitant]
  6. VITAMIN B 12 (CYANOCOBALMIN) TABLET [Concomitant]

REACTIONS (1)
  - Nausea [None]
